APPROVED DRUG PRODUCT: PREGABALIN
Active Ingredient: PREGABALIN
Strength: 82.5MG
Dosage Form/Route: TABLET, EXTENDED RELEASE;ORAL
Application: A215577 | Product #001
Applicant: ZYDUS PHARMACEUTICALS USA INC
Approved: Aug 26, 2022 | RLD: No | RS: No | Type: DISCN